FAERS Safety Report 7384207-X (Version None)
Quarter: 2011Q1

REPORT INFORMATION
  Report Type: 
  Country: None (occurrence: None)
  Receive Date: 20110330
  Receipt Date: 20110324
  Transmission Date: 20110831
  Serious: Yes (Hospitalization)
  Sender: FDA-Public Use
  Company Number: Z0008637A

PATIENT
  Sex: Male
  Weight: 111 kg

DRUGS (3)
  1. OFATUMUMAB [Suspect]
     Route: 042
     Dates: start: 20100908
  2. CYCLOPHOSPHAMIDE [Suspect]
     Route: 042
     Dates: start: 20100908
  3. FLUDARABINE [Suspect]
     Route: 042
     Dates: start: 20100908

REACTIONS (1)
  - BRONCHITIS [None]
